FAERS Safety Report 16651426 (Version 1)
Quarter: 2019Q3

REPORT INFORMATION
  Report Type: Spontaneous
  Country: US (occurrence: US)
  Receive Date: 20190730
  Receipt Date: 20190730
  Transmission Date: 20191004
  Serious: Yes (Life-Threatening, Disabling)
  Sender: FDA-Public Use
  Company Number: None

PATIENT
  Age: 27 Year
  Sex: Male
  Weight: 96.75 kg

DRUGS (2)
  1. WIXELA INHUB [Suspect]
     Active Substance: FLUTICASONE PROPIONATE\SALMETEROL XINAFOATE
     Indication: ASTHMA
     Dosage: ?          OTHER STRENGTH:INHALATION POWDER;QUANTITY:60 INHALATION(S);?
     Route: 055
     Dates: start: 20190702, end: 20190730
  2. ADVAIR HFA [Concomitant]
     Active Substance: FLUTICASONE PROPIONATE\SALMETEROL XINAFOATE

REACTIONS (3)
  - Treatment failure [None]
  - Hyperhidrosis [None]
  - Product substitution issue [None]

NARRATIVE: CASE EVENT DATE: 20190729
